FAERS Safety Report 7585508-2 (Version None)
Quarter: 2011Q2

REPORT INFORMATION
  Report Type: 
  Country: None (occurrence: None)
  Receive Date: 20110624
  Receipt Date: 20110610
  Transmission Date: 20111010
  Serious: Yes (Hospitalization)
  Sender: FDA-Public Use
  Company Number: 2011MA007077

PATIENT
  Age: 25 Year
  Sex: Male

DRUGS (7)
  1. ACYCLOVIR [Suspect]
     Indication: HERPES ZOSTER
     Dosage: 800 MG, 5XDAY, PO
     Route: 048
  2. TRILEPTAL [Concomitant]
  3. VICODIN [Concomitant]
  4. ABILIFY [Concomitant]
  5. XANAX [Concomitant]
  6. PROPRANOLOL [Concomitant]
  7. AMBIEN [Concomitant]

REACTIONS (5)
  - RENAL FAILURE ACUTE [None]
  - RASH [None]
  - PAIN [None]
  - CORNEAL OEDEMA [None]
  - NEPHROPATHY [None]
